FAERS Safety Report 8401626 (Version 5)
Quarter: 2012Q4

REPORT INFORMATION
  Report Type: 
  Country: AR (occurrence: AR)
  Receive Date: 20120210
  Receipt Date: 20120910
  Transmission Date: 20130627
  Serious: Yes (Other)
  Sender: FDA-Public Use
  Company Number: PHHY2011AR96466

PATIENT
  Age: 47 None
  Sex: Female

DRUGS (2)
  1. GLIVEC [Suspect]
     Indication: CHRONIC MYELOID LEUKAEMIA
     Dosage: 400 mg, QD
     Dates: start: 201003
  2. FOLIC ACID [Concomitant]

REACTIONS (14)
  - Large intestine polyp [Not Recovered/Not Resolved]
  - Gastrointestinal disorder [Recovering/Resolving]
  - Stress [Recovering/Resolving]
  - Blister [Recovering/Resolving]
  - Blood pressure decreased [Recovering/Resolving]
  - Nausea [Not Recovered/Not Resolved]
  - Skin discolouration [Recovering/Resolving]
  - Fatigue [Recovering/Resolving]
  - Pain [Recovered/Resolved]
  - Dermatitis [Recovering/Resolving]
  - Eye pain [Recovered/Resolved]
  - Rash [Not Recovered/Not Resolved]
  - Pruritus [Not Recovered/Not Resolved]
  - Haematochezia [Not Recovered/Not Resolved]
